FAERS Safety Report 5122095-2 (Version None)
Quarter: 2006Q4

REPORT INFORMATION
  Report Type: 
  Country: None (occurrence: None)
  Receive Date: 20061004
  Receipt Date: 20061004
  Transmission Date: 20070319
  Serious: No
  Sender: FDA-Public Use
  Company Number: None

PATIENT
  Age: 45 Year
  Sex: Female
  Weight: 99.7913 kg

DRUGS (1)
  1. NORVASC [Suspect]
     Indication: HYPERTENSION
     Dosage: 5MG  BID  PO
     Route: 048
     Dates: start: 20060501, end: 20061002

REACTIONS (4)
  - ATRIAL FIBRILLATION [None]
  - DRUG DOSE OMISSION [None]
  - PALPITATIONS [None]
  - TREATMENT NONCOMPLIANCE [None]
